FAERS Safety Report 7232412-5 (Version None)
Quarter: 2011Q1

REPORT INFORMATION
  Report Type: 
  Country: None (occurrence: None)
  Receive Date: 20110119
  Receipt Date: 20110113
  Transmission Date: 20110831
  Serious: Yes (Other)
  Sender: FDA-Public Use
  Company Number: US-PFIZER INC-2011009261

PATIENT
  Sex: Female
  Weight: 58.957 kg

DRUGS (3)
  1. CELEBREX [Suspect]
     Indication: ARTHRALGIA
     Dosage: 200 MG, DAILY
     Route: 048
     Dates: start: 20101117, end: 20101124
  2. PREMARIN [Concomitant]
     Indication: HYSTERECTOMY
     Dosage: UNK
  3. CELEBREX [Suspect]

REACTIONS (4)
  - DYSPNOEA [None]
  - PALPITATIONS [None]
  - PARAESTHESIA [None]
  - OEDEMA PERIPHERAL [None]
